FAERS Safety Report 23697533 (Version 1)
Quarter: 2024Q2

REPORT INFORMATION
  Report Type: Other
  Country: US (occurrence: None)
  Receive Date: 20240402
  Receipt Date: 20240402
  Transmission Date: 20240716
  Serious: Yes (Other)
  Sender: FDA-Public Use
  Company Number: US-ROCHE-3405496

PATIENT
  Age: 55 Year
  Sex: Male
  Weight: 90.8 kg

DRUGS (3)
  1. OCREVUS [Suspect]
     Active Substance: OCRELIZUMAB
     Indication: Relapsing-remitting multiple sclerosis
     Dosage: DOT: 2023-01-26, 2022-01-27, 2023-01-26
     Route: 042
     Dates: start: 2005
  2. OCREVUS [Suspect]
     Active Substance: OCRELIZUMAB
     Dosage: MOST RECENT INFUSION :28/FEB/2024.
     Route: 042
     Dates: start: 2017
  3. TADALAFIL [Concomitant]
     Active Substance: TADALAFIL
     Dosage: TAKE AS NEEDED
     Route: 048

REACTIONS (6)
  - Muscular weakness [Recovered/Resolved]
  - Optic nerve neoplasm [Not Recovered/Not Resolved]
  - Blindness [Not Recovered/Not Resolved]
  - COVID-19 [Recovered/Resolved]
  - Pruritus [Not Recovered/Not Resolved]
  - Hypersomnia [Recovered/Resolved]

NARRATIVE: CASE EVENT DATE: 20230101
